FAERS Safety Report 4292316-7 (Version None)
Quarter: 2004Q1

REPORT INFORMATION
  Report Type: 
  Country: None (occurrence: None)
  Receive Date: 20040126
  Receipt Date: 20031117
  Transmission Date: 20041129
  Serious: No
  Sender: FDA-Public Use
  Company Number: USA031152722

PATIENT
  Age: 64 Year
  Sex: Female

DRUGS (5)
  1. FORTEO [Suspect]
     Indication: OSTEOPOROSIS
     Dosage: 20 UG/DAY
     Dates: start: 20030801
  2. FOSAMAX [Concomitant]
  3. LOTREL [Concomitant]
  4. DILANTIN [Concomitant]
  5. OGEN (ESTROPIPRATE) [Concomitant]

REACTIONS (3)
  - ARTHRITIS [None]
  - BACK INJURY [None]
  - RIB FRACTURE [None]
